FAERS Safety Report 9349611 (Version 2)
Quarter: 2014Q1

REPORT INFORMATION
  Report Type: Spontaneous
  Country: US (occurrence: US)
  Receive Date: 20130614
  Receipt Date: 20140310
  Transmission Date: 20141002
  Serious: Yes (Hospitalization)
  Sender: FDA-Public Use
  Company Number: US-B.I. PHARMACEUTICALS,INC./RIDGEFIELD-2013-BI-16575BP

PATIENT
  Sex: Male
  Weight: 66.68 kg

DRUGS (8)
  1. PRADAXA [Suspect]
     Indication: ATRIAL FIBRILLATION
     Route: 065
     Dates: start: 20110729, end: 20120424
  2. TYLENOL [Concomitant]
     Route: 065
  3. PLAVIX [Concomitant]
     Route: 065
     Dates: end: 20120424
  4. PREVACID [Concomitant]
     Route: 065
  5. XANAX [Concomitant]
     Route: 065
  6. ISORDIL [Concomitant]
     Route: 065
  7. COLACE [Concomitant]
     Route: 065
  8. ASPIRIN [Concomitant]
     Route: 065
     Dates: end: 20120424

REACTIONS (3)
  - Gastrointestinal haemorrhage [Unknown]
  - Haemorrhagic anaemia [Unknown]
  - Hypovolaemic shock [Unknown]
